FAERS Safety Report 10039500 (Version 1)
Quarter: 2014Q1

REPORT INFORMATION
  Report Type: Spontaneous
  Country: FR (occurrence: FR)
  Receive Date: 20140326
  Receipt Date: 20140326
  Transmission Date: 20141002
  Serious: Yes (Disabling, Other)
  Sender: FDA-Public Use
  Company Number: FR-PFIZER INC-2014083076

PATIENT
  Age: 47 Year
  Sex: Female
  Weight: 59 kg

DRUGS (3)
  1. ATENOLOL [Suspect]
     Indication: MIGRAINE
     Dosage: 100 MG, DAILY
     Route: 048
     Dates: start: 1998, end: 2009
  2. PROPANOLOL [Suspect]
     Indication: MIGRAINE
     Dosage: 40 MG, UNK
     Route: 048
     Dates: start: 1985
  3. PROPANOLOL [Suspect]
     Dosage: 80 MG, UNK
     Route: 048
     Dates: end: 1998

REACTIONS (14)
  - Hypothalamo-pituitary disorder [Unknown]
  - Fall [Unknown]
  - Condition aggravated [Unknown]
  - Radicular pain [Recovering/Resolving]
  - Chronic fatigue syndrome [Recovering/Resolving]
  - Muscle spasms [Unknown]
  - Synovitis [Recovering/Resolving]
  - Bradycardia [Unknown]
  - Angina pectoris [Unknown]
  - Abdominal pain [Unknown]
  - Hypertension [Unknown]
  - Confusional state [Unknown]
  - Headache [Unknown]
  - Off label use [Unknown]
